FAERS Safety Report 6680672-1 (Version None)
Quarter: 2010Q2

REPORT INFORMATION
  Report Type: 
  Country: None (occurrence: None)
  Receive Date: 20100414
  Receipt Date: 20100402
  Transmission Date: 20101027
  Serious: Yes (Other)
  Sender: FDA-Public Use
  Company Number: US-PFIZER INC-2010032237

PATIENT
  Age: 55 Year
  Sex: Female
  Weight: 66.213 kg

DRUGS (10)
  1. SUTENT [Suspect]
     Indication: RENAL CELL CARCINOMA
     Dosage: 50 MG, 1X/DAY
     Dates: start: 20090801
  2. DECADRON [Concomitant]
     Dosage: UNK
  3. COMPAZINE [Concomitant]
     Dosage: UNK
  4. PERCOCET [Concomitant]
     Dosage: UNK
  5. METOPROLOL [Concomitant]
     Dosage: UNK
  6. METHADONE HYDROCHLORIDE [Concomitant]
     Dosage: UNK
  7. SENNA [Concomitant]
     Dosage: UNK
  8. NORVASC [Concomitant]
     Dosage: UNK
  9. COLACE [Concomitant]
     Dosage: UNK
  10. PROZAC [Concomitant]
     Dosage: UNK

REACTIONS (1)
  - AORTITIS [None]
